FAERS Safety Report 20482674 (Version 11)
Quarter: 2022Q4

REPORT INFORMATION
  Report Type: Spontaneous
  Country: GB (occurrence: GB)
  Receive Date: 20220217
  Receipt Date: 20221216
  Transmission Date: 20230113
  Serious: Yes (Hospitalization, Congenital Anomaly, Other)
  Sender: FDA-Public Use
  Company Number: None

PATIENT
  Sex: Male

DRUGS (41)
  1. TENOFOVIR [Suspect]
     Active Substance: TENOFOVIR
     Dosage: MOTHER DOSE: 300 MILLIGRAM, QD
     Route: 064
  2. TENOFOVIR [Suspect]
     Active Substance: TENOFOVIR
     Dosage: MOTHER DOSE: 300 MILLIGRAM, QD
     Route: 064
  3. TENOFOVIR [Suspect]
     Active Substance: TENOFOVIR
     Dosage: UNK, QD
     Route: 064
  4. TENOFOVIR [Suspect]
     Active Substance: TENOFOVIR
     Dosage: MOTHER DOSE: 300 MILLIGRAM, QD (TABLET)
     Route: 064
  5. TENOFOVIR [Suspect]
     Active Substance: TENOFOVIR
     Dosage: UNK
     Route: 064
  6. ZIDOVUDINE [Suspect]
     Active Substance: ZIDOVUDINE
     Dosage: MOTHER DOSE: 800 MILLIGRAM, QD (TABLET)
     Route: 064
  7. ZIDOVUDINE [Suspect]
     Active Substance: ZIDOVUDINE
     Dosage: MOTHER DOSE: 600 MILLIGRAM, QD (TABLET)
     Route: 064
  8. ZIDOVUDINE [Suspect]
     Active Substance: ZIDOVUDINE
     Dosage: MOTHER DOSE: 600 MILLIGRAM, QD (POWDER FOR INFUSION)
     Route: 064
  9. ZIDOVUDINE [Suspect]
     Active Substance: ZIDOVUDINE
     Dosage: UNK (POWDER FOR INFUSION)
     Route: 064
  10. ZIDOVUDINE [Suspect]
     Active Substance: ZIDOVUDINE
     Dosage: MOTHER DOSE: 600 MILLIGRAM, QD (POWDER FOR INFUSION)
     Route: 064
  11. LAMIVUDINE [Suspect]
     Active Substance: LAMIVUDINE
     Dosage: UNK, TABLET
     Route: 064
  12. LAMIVUDINE [Suspect]
     Active Substance: LAMIVUDINE
     Dosage: UNK, (TABLET)
     Route: 064
  13. LAMIVUDINE [Suspect]
     Active Substance: LAMIVUDINE
     Dosage: MOTHER DOSE: 150 MILLIGRAM, UNK (TABLET)
     Route: 064
  14. LAMIVUDINE [Suspect]
     Active Substance: LAMIVUDINE
     Dosage: MOTHER DOSE: 300 MILLIGRAM, QD (TABLET)
     Route: 064
  15. LAMIVUDINE [Suspect]
     Active Substance: LAMIVUDINE
     Dosage: UNK, (TABLET)
     Route: 064
  16. LAMIVUDINE [Suspect]
     Active Substance: LAMIVUDINE
     Dosage: UNK, (TABLET)
     Route: 064
  17. LAMIVUDINE [Suspect]
     Active Substance: LAMIVUDINE
     Dosage: MOTHER DOSE: 300 MILLIGRAM, QD (TABLET)
     Route: 064
  18. NEVIRAPINE [Suspect]
     Active Substance: NEVIRAPINE
     Dosage: UNK
     Route: 064
  19. NEVIRAPINE [Suspect]
     Active Substance: NEVIRAPINE
     Dosage: UNK
     Route: 064
  20. NEVIRAPINE [Suspect]
     Active Substance: NEVIRAPINE
     Dosage: MOTHER DOSE: 400 MILLIGRAM (MODIFIED RELEASE TABLET)
     Route: 064
  21. NEVIRAPINE [Suspect]
     Active Substance: NEVIRAPINE
     Dosage: 400 MILLIGRAM, QD
     Route: 064
  22. NEVIRAPINE [Suspect]
     Active Substance: NEVIRAPINE
     Dosage: 400 MILLIGRAM, QD
     Route: 064
  23. NEVIRAPINE [Suspect]
     Active Substance: NEVIRAPINE
     Dosage: UNK
     Route: 064
  24. VIREAD [Suspect]
     Active Substance: TENOFOVIR DISOPROXIL FUMARATE
     Dosage: UNK
     Route: 064
  25. VIREAD [Suspect]
     Active Substance: TENOFOVIR DISOPROXIL FUMARATE
     Dosage: MOTHER DOSE: 300 MILLIGRAM, QD
     Route: 064
  26. ISENTRESS [Suspect]
     Active Substance: RALTEGRAVIR POTASSIUM
     Dosage: UNK
     Route: 064
  27. ISENTRESS [Suspect]
     Active Substance: RALTEGRAVIR POTASSIUM
     Dosage: MOTHER DOSE: 3200 MILLIGRAM, QD (800 MG, QID)
     Route: 064
  28. ISENTRESS [Suspect]
     Active Substance: RALTEGRAVIR POTASSIUM
     Dosage: MOTHER DOSE: 1 DOSAGE FORM, QD, 3200 MILLIGRAM, QD (800 MILLIGRAM, QID)
     Route: 064
  29. KALETRA [Suspect]
     Active Substance: LOPINAVIR\RITONAVIR
     Dosage: UNK
     Route: 064
  30. KALETRA [Suspect]
     Active Substance: LOPINAVIR\RITONAVIR
     Dosage: UNK
     Route: 064
  31. LOPINAVIR\RITONAVIR [Suspect]
     Active Substance: LOPINAVIR\RITONAVIR
     Dosage: UNK
     Route: 064
  32. LOPINAVIR\RITONAVIR [Suspect]
     Active Substance: LOPINAVIR\RITONAVIR
     Dosage: UNK
     Route: 064
  33. RALTEGRAVIR [Suspect]
     Active Substance: RALTEGRAVIR
     Dosage: MOTHER DOSE: 800 MILLIGRAM, QD
     Route: 064
  34. RALTEGRAVIR [Suspect]
     Active Substance: RALTEGRAVIR
     Dosage: MOTHER DOSE: 1 DOSAGE FORM QD
     Route: 064
  35. RALTEGRAVIR [Suspect]
     Active Substance: RALTEGRAVIR
     Dosage: UNK
     Route: 064
  36. RALTEGRAVIR [Suspect]
     Active Substance: RALTEGRAVIR
     Dosage: UNK
     Route: 064
  37. LOPINAVIR\RITONAVIR [Suspect]
     Active Substance: LOPINAVIR\RITONAVIR
     Dosage: UNK
     Route: 064
  38. LOPINAVIR\RITONAVIR [Suspect]
     Active Substance: LOPINAVIR\RITONAVIR
     Dosage: UNK
     Route: 064
  39. VIRAMUNE [Suspect]
     Active Substance: NEVIRAPINE
     Dosage: UNK
     Route: 064
  40. VIRAMUNE [Suspect]
     Active Substance: NEVIRAPINE
     Dosage: MOTHER DOSE: 400 MILLIGRAM, QD
     Route: 064
  41. VIRAMUNE [Suspect]
     Active Substance: NEVIRAPINE
     Dosage: MOTHER DOSE: 400 MILLIGRAM, QD
     Route: 064

REACTIONS (2)
  - Volvulus [Not Recovered/Not Resolved]
  - Foetal exposure during pregnancy [Recovered/Resolved]
